FAERS Safety Report 4603742-8 (Version None)
Quarter: 2005Q1

REPORT INFORMATION
  Report Type: 
  Country: None (occurrence: None)
  Receive Date: 20050308
  Receipt Date: 20050308
  Transmission Date: 20050727
  Serious: Yes (Other)
  Sender: FDA-Public Use
  Company Number: None

PATIENT
  Age: 24 Year
  Sex: Male
  Weight: 79.3795 kg

DRUGS (2)
  1. PROPECIA [Suspect]
     Indication: ALOPECIA
     Dosage: 1MG   DAY   ORAL
     Route: 048
     Dates: start: 20041028, end: 20050220
  2. PROPECIA [Suspect]
     Indication: PROPHYLAXIS
     Dosage: 1MG   DAY   ORAL
     Route: 048
     Dates: start: 20041028, end: 20050220

REACTIONS (5)
  - AFFECTIVE DISORDER [None]
  - ANXIETY [None]
  - DEPRESSION [None]
  - EATING DISORDER [None]
  - SLEEP DISORDER [None]
